FAERS Safety Report 8303173-3 (Version None)
Quarter: 2012Q2

REPORT INFORMATION
  Report Type: 
  Country: None (occurrence: None)
  Receive Date: 20120423
  Receipt Date: 20120418
  Transmission Date: 20120825
  Serious: No
  Sender: FDA-Public Use
  Company Number: US-BIOGENIDEC-2010BI025130

PATIENT
  Sex: Female

DRUGS (1)
  1. TYSABRI [Suspect]
     Indication: MULTIPLE SCLEROSIS
     Route: 042
     Dates: start: 20080403

REACTIONS (11)
  - RED BLOOD CELL COUNT DECREASED [None]
  - MULTIPLE SCLEROSIS RELAPSE [None]
  - PAIN [None]
  - DECREASED IMMUNE RESPONSIVENESS [None]
  - VENOUS INSUFFICIENCY [None]
  - CARDIOVASCULAR DISORDER [None]
  - TEMPERATURE INTOLERANCE [None]
  - MULTIPLE SCLEROSIS [None]
  - PAIN IN EXTREMITY [None]
  - URINARY TRACT INFECTION [None]
  - CYSTITIS [None]
